FAERS Safety Report 5855025-6 (Version None)
Quarter: 2008Q3

REPORT INFORMATION
  Report Type: 
  Country: None (occurrence: None)
  Receive Date: 20080822
  Receipt Date: 20080509
  Transmission Date: 20090109
  Serious: No
  Sender: FDA-Public Use
  Company Number: US-ABBOTT-08P-163-0451329-00

PATIENT
  Sex: Female
  Weight: 68.1 kg

DRUGS (6)
  1. SYNTHROID [Suspect]
     Indication: THYROID DISORDER
     Route: 048
     Dates: start: 19730101
  2. SYNTHROID [Suspect]
     Indication: PARATHYROIDECTOMY
  3. DICLOFENAC [Interacting]
     Indication: ARTHRALGIA
     Dosage: 75 MG DAILY
     Route: 048
     Dates: start: 20080201, end: 20080301
  4. HYZAAR [Concomitant]
     Indication: HYPERTENSION
     Dosage: 100 MG/12.5 MG
     Route: 048
     Dates: start: 20000101
  5. ESCITALOPRAM OXALATE [Concomitant]
     Indication: DEPRESSION
     Route: 048
     Dates: start: 20050101, end: 20071101
  6. ESCITALOPRAM OXALATE [Concomitant]
     Route: 048
     Dates: start: 20080401

REACTIONS (9)
  - ARTHRALGIA [None]
  - DERMATITIS BULLOUS [None]
  - DRUG INTERACTION [None]
  - GAIT DISTURBANCE [None]
  - RASH ERYTHEMATOUS [None]
  - RASH MACULAR [None]
  - RASH PAPULAR [None]
  - RASH PRURITIC [None]
  - SKIN PLAQUE [None]
